FAERS Safety Report 10914751 (Version 2)
Quarter: 2015Q1

REPORT INFORMATION
  Report Type: Spontaneous
  Country: JP (occurrence: JP)
  Receive Date: 20150313
  Receipt Date: 20150327
  Transmission Date: 20150721
  Serious: Yes (Death, Hospitalization, Other)
  Sender: FDA-Public Use
  Company Number: JP-ASTRAZENECA-2015SE23281

PATIENT
  Age: 33 Year
  Sex: Female

DRUGS (2)
  1. FIRSTCIN [Concomitant]
     Active Substance: CEFOZOPRAN HYDROCHLORIDE
  2. MEROPEN [Suspect]
     Active Substance: MEROPENEM
     Route: 042

REACTIONS (6)
  - Toxic shock syndrome [Unknown]
  - Diarrhoea [Unknown]
  - Gastroenteritis staphylococcal [Unknown]
  - Death [Fatal]
  - Cardio-respiratory arrest [Unknown]
  - Ileus [Unknown]
